FAERS Safety Report 13789430 (Version 1)
Quarter: 2017Q3

REPORT INFORMATION
  Report Type: Spontaneous
  Country: US (occurrence: US)
  Receive Date: 20170725
  Receipt Date: 20170725
  Transmission Date: 20171127
  Serious: No
  Sender: FDA-Public Use
  Company Number: US-PFIZER INC-2017321759

PATIENT
  Sex: Female

DRUGS (3)
  1. ENBREL [Concomitant]
     Active Substance: ETANERCEPT
  2. LYRICA [Suspect]
     Active Substance: PREGABALIN
  3. DULOXETINE. [Concomitant]
     Active Substance: DULOXETINE

REACTIONS (1)
  - Anxiety [Unknown]
